FAERS Safety Report 8181967-5 (Version None)
Quarter: 2012Q1

REPORT INFORMATION
  Report Type: 
  Country: None (occurrence: None)
  Receive Date: 20120302
  Receipt Date: 20120222
  Transmission Date: 20120608
  Serious: Yes (Other)
  Sender: FDA-Public Use
  Company Number: RU-ASTRAZENECA-2012SE13136

PATIENT
  Age: 36 Year
  Sex: Female

DRUGS (7)
  1. MEXIDOL [Concomitant]
  2. DEPAKENE [Concomitant]
  3. FRAXIPARINE [Concomitant]
  4. LOMILAN [Concomitant]
  5. DIACARB [Concomitant]
  6. VANCOMYCIN [Concomitant]
  7. MEROPENEM [Suspect]
     Route: 042

REACTIONS (3)
  - DRUG PRESCRIBING ERROR [None]
  - HYPERAEMIA [None]
  - FACE OEDEMA [None]
